FAERS Safety Report 25416776 (Version 1)
Quarter: 2025Q2

REPORT INFORMATION
  Report Type: Spontaneous
  Country: US (occurrence: US)
  Receive Date: 20250610
  Receipt Date: 20250610
  Transmission Date: 20250716
  Serious: Yes (Death, Hospitalization)
  Sender: GAMIDA CELL
  Company Number: US-GAMIDA CELL LTD.-GC-25US000018

PATIENT

DRUGS (3)
  1. OMISIRGE [Suspect]
     Active Substance: OMIDUBICEL-ONLV
     Indication: Acute myeloid leukaemia
     Route: 042
     Dates: start: 20250321, end: 20250321
  2. TACROLIMUS [Suspect]
     Active Substance: TACROLIMUS
     Indication: Prophylaxis against graft versus host disease
     Dates: end: 20250323
  3. SIROLIMUS [Suspect]
     Active Substance: SIROLIMUS
     Indication: Prophylaxis against graft versus host disease
     Dates: start: 20250324, end: 20250415

REACTIONS (7)
  - Atypical haemolytic uraemic syndrome [Fatal]
  - Graft versus host disease in skin [Fatal]
  - Septic shock [Fatal]
  - Thrombotic microangiopathy [Unknown]
  - Mucosal inflammation [Recovered/Resolved]
  - Posterior reversible encephalopathy syndrome [Recovered/Resolved]
  - Venoocclusive disease [Recovered/Resolved]

NARRATIVE: CASE EVENT DATE: 20250323
